FAERS Safety Report 9706548 (Version 2)
Quarter: 2013Q4

REPORT INFORMATION
  Report Type: Spontaneous
  Country: FR (occurrence: FR)
  Receive Date: 20131125
  Receipt Date: 20131125
  Transmission Date: 20140711
  Serious: Yes (Hospitalization, Other)
  Sender: FDA-Public Use
  Company Number: FR-009507513-1306FRA001156

PATIENT
  Age: 55 Year
  Sex: Female
  Weight: 42 kg

DRUGS (4)
  1. INEGY [Suspect]
     Indication: HYPERCHOLESTEROLAEMIA
     Dosage: 1 DF, QD
     Route: 048
     Dates: start: 20090616, end: 20130320
  2. KARDEGIC [Concomitant]
     Dosage: UNK
     Dates: start: 2007
  3. ZESTRIL [Concomitant]
     Dosage: UNK
     Dates: start: 2007
  4. TENORMINE [Concomitant]
     Dosage: UNK
     Dates: start: 2007

REACTIONS (2)
  - General physical health deterioration [Recovering/Resolving]
  - Hepatitis [Unknown]
